FAERS Safety Report 19719753 (Version 3)
Quarter: 2021Q3

REPORT INFORMATION
  Report Type: Spontaneous
  Country: US (occurrence: US)
  Receive Date: 20210819
  Receipt Date: 20210929
  Transmission Date: 20211014
  Serious: No
  Sender: FDA-Public Use
  Company Number: US-APOTEX-2021AP032124

PATIENT
  Sex: Female

DRUGS (1)
  1. IPRATROPIUM BROMIDE NASAL SOLUTION [Suspect]
     Active Substance: IPRATROPIUM BROMIDE
     Indication: RHINORRHOEA
     Dosage: 1 DOSAGE FORM, QD (ONE SPRAY IN EACH NOSTRIL)
     Route: 045
     Dates: start: 2021

REACTIONS (3)
  - Product delivery mechanism issue [Unknown]
  - Treatment noncompliance [Unknown]
  - Product packaging quantity issue [Unknown]
